FAERS Safety Report 4384393-X (Version None)
Quarter: 2004Q2

REPORT INFORMATION
  Report Type: 
  Country: None (occurrence: None)
  Receive Date: 20040621
  Receipt Date: 20040607
  Transmission Date: 20050107
  Serious: Yes (Death)
  Sender: FDA-Public Use
  Company Number: 2003140383ES

PATIENT
  Age: 69 Year
  Sex: Male

DRUGS (12)
  1. CAMPTOSAR [Suspect]
     Indication: COLORECTAL CANCER
     Dosage: 160 MG, CYCLIC, IV
     Route: 042
     Dates: start: 20021104, end: 20021104
  2. FLUOROURACIL [Suspect]
     Indication: COLORECTAL CANCER
     Dosage: 4400 MG, CYCLIC, IV
     Route: 042
     Dates: start: 20021104, end: 20021104
  3. CAMPTOSAR [Suspect]
     Indication: COLORECTAL CANCER
     Dosage: 460 MG, CYCLIC, IV
     Route: 042
     Dates: start: 20021209, end: 20021209
  4. FLUOROURACIL [Suspect]
     Indication: COLORECTAL CANCER
     Dosage: 4400 MG, CYCLIC, IV
     Route: 042
     Dates: start: 20021209, end: 20021209
  5. FORTECORTIN [Concomitant]
  6. ONDASETRON (ONDASETRON) [Concomitant]
  7. OPONAF (LACTITOL) [Concomitant]
  8. ORFIDAL [Concomitant]
  9. KONAKION [Concomitant]
  10. NOLOTIL/NOR/(DEXTROPROPOXYPHENE) [Concomitant]
  11. X-PREP (SENNA LEAF) [Concomitant]
  12. PRIMPERAN INJ [Concomitant]

REACTIONS (5)
  - ANOREXIA [None]
  - ASTHENIA [None]
  - DIARRHOEA [None]
  - HYPOPROTEINAEMIA [None]
  - SUDDEN DEATH [None]
